FAERS Safety Report 15429923 (Version 2)
Quarter: 2018Q4

REPORT INFORMATION
  Report Type: Spontaneous
  Country: IT (occurrence: IT)
  Receive Date: 20180926
  Receipt Date: 20181003
  Transmission Date: 20190204
  Serious: Yes (Hospitalization)
  Sender: FDA-Public Use
  Company Number: IT-MISSION PHARMACAL COMPANY-2055361

PATIENT
  Age: 80 Year
  Sex: Male

DRUGS (11)
  1. QUETIAPINE. [Concomitant]
     Active Substance: QUETIAPINE
  2. OMEPRAZOLE. [Concomitant]
     Active Substance: OMEPRAZOLE
  3. LACIDIPINE [Concomitant]
     Active Substance: LACIDIPINE
  4. TAMSULOSIN HYDROCHLORIDE. [Concomitant]
     Active Substance: TAMSULOSIN HYDROCHLORIDE
  5. MADOPAR [Concomitant]
     Active Substance: BENSERAZIDE HYDROCHLORIDE\LEVODOPA
  6. RIVASTIGMINE. [Concomitant]
     Active Substance: RIVASTIGMINE
  7. LOSARTAN. [Concomitant]
     Active Substance: LOSARTAN
  8. LACTULOSE. [Concomitant]
     Active Substance: LACTULOSE
  9. BINOSTO [Suspect]
     Active Substance: ALENDRONATE SODIUM
  10. AVODART [Concomitant]
     Active Substance: DUTASTERIDE
  11. MEMANTINE HYDROCHLORIDE. [Concomitant]
     Active Substance: MEMANTINE HYDROCHLORIDE

REACTIONS (1)
  - Haematochezia [Unknown]
